FAERS Safety Report 6693064-6 (Version None)
Quarter: 2010Q2

REPORT INFORMATION
  Report Type: 
  Country: None (occurrence: None)
  Receive Date: 20100422
  Receipt Date: 20100415
  Transmission Date: 20101027
  Serious: Yes (Other)
  Sender: FDA-Public Use
  Company Number: US-MILLENNIUM PHARMACEUTICALS, INC.-2010-02169

PATIENT
  Age: 49 Year
  Sex: Male
  Weight: 86.6 kg

DRUGS (7)
  1. VELCADE [Suspect]
     Indication: MANTLE CELL LYMPHOMA
     Dosage: 1.3 MG/M2, CYCLIC
     Route: 040
     Dates: start: 20080711, end: 20080714
  2. RITUXIMAB [Suspect]
     Indication: MANTLE CELL LYMPHOMA
     Dosage: 375 MG/M2, CYCLIC
     Route: 042
     Dates: start: 20080711, end: 20080711
  3. CYCLOPHOSPHAMIDE [Suspect]
     Indication: MANTLE CELL LYMPHOMA
     Dosage: 300 MG/M2, CYCLIC
     Route: 042
     Dates: start: 20080711, end: 20080714
  4. DOXORUBICIN HCL [Suspect]
     Indication: MANTLE CELL LYMPHOMA
     Dosage: 25 MG/M2, CYCLIC
     Route: 042
     Dates: start: 20080711, end: 20080714
  5. VINCRISTINE [Suspect]
     Indication: MANTLE CELL LYMPHOMA
     Dosage: 1 MG, CYCLIC
     Route: 040
     Dates: start: 20080711, end: 20080713
  6. DEXAMETHASONE [Suspect]
     Indication: MANTLE CELL LYMPHOMA
     Dosage: 40 MG, CYCLIC
     Dates: start: 20080711, end: 20080714
  7. NEULASTA [Suspect]
     Indication: MANTLE CELL LYMPHOMA
     Dosage: 6 MG, CYCLIC
     Route: 058
     Dates: start: 20080711, end: 20080715

REACTIONS (3)
  - CONSTIPATION [None]
  - HAEMORRHOIDS [None]
  - RECTAL HAEMORRHAGE [None]
